FAERS Safety Report 21360732 (Version 2)
Quarter: 2022Q4

REPORT INFORMATION
  Report Type: Spontaneous
  Country: US (occurrence: US)
  Receive Date: 20220921
  Receipt Date: 20221005
  Transmission Date: 20230113
  Serious: Yes (Hospitalization)
  Sender: FDA-Public Use
  Company Number: US-PFIZER INC-202201104525

PATIENT
  Age: 79 Year
  Sex: Female
  Weight: 82.086 kg

DRUGS (1)
  1. PAXLOVID [Suspect]
     Active Substance: NIRMATRELVIR\RITONAVIR
     Indication: COVID-19 treatment
     Dosage: UNK, TWICE A DAY

REACTIONS (2)
  - Reaction to excipient [Recovering/Resolving]
  - Pruritus [Recovering/Resolving]
